FAERS Safety Report 6865171-6 (Version None)
Quarter: 2010Q3

REPORT INFORMATION
  Report Type: 
  Country: None (occurrence: None)
  Receive Date: 20100721
  Receipt Date: 20080507
  Transmission Date: 20110219
  Serious: Yes (Other)
  Sender: FDA-Public Use
  Company Number: US-PFIZER INC-2008033040

PATIENT
  Sex: Female
  Weight: 61 kg

DRUGS (8)
  1. CHANTIX [Suspect]
     Indication: SMOKING CESSATION THERAPY
     Route: 048
     Dates: start: 20080402, end: 20080401
  2. LORTAB [Concomitant]
  3. LUNESTA [Concomitant]
  4. NEURONTIN [Concomitant]
  5. CYMBALTA [Concomitant]
  6. ZOLOFT [Concomitant]
  7. CLONIDINE [Concomitant]
  8. XANAX [Concomitant]

REACTIONS (8)
  - ABNORMAL DREAMS [None]
  - ANXIETY [None]
  - FEELING ABNORMAL [None]
  - NERVOUSNESS [None]
  - NIGHT SWEATS [None]
  - NIGHTMARE [None]
  - SUICIDAL IDEATION [None]
  - TREMOR [None]
